FAERS Safety Report 7777666-1 (Version None)
Quarter: 2011Q3

REPORT INFORMATION
  Report Type: 
  Country: None (occurrence: None)
  Receive Date: 20110926
  Receipt Date: 20110916
  Transmission Date: 20111222
  Serious: Yes (Hospitalization, Other)
  Sender: FDA-Public Use
  Company Number: US-ABBOTT-11P-163-0856176-00

PATIENT
  Age: 60 Year
  Sex: Female

DRUGS (12)
  1. HUMIRA [Suspect]
     Indication: PSORIASIS
     Dates: start: 20110701
  2. PROZAC [Concomitant]
     Indication: BIPOLAR DISORDER
  3. FLUOXETINE [Concomitant]
     Indication: BIPOLAR DISORDER
  4. ZOLPIDEM [Concomitant]
     Indication: PRODUCT USED FOR UNKNOWN INDICATION
  5. ABILIFY [Concomitant]
     Indication: PRODUCT USED FOR UNKNOWN INDICATION
     Dosage: AT BEDTIME
     Dates: start: 20110101
  6. LORATADINE [Concomitant]
     Indication: HYPERSENSITIVITY
  7. LISINOPRIL [Concomitant]
     Indication: HYPERTENSION
  8. CLOBETASOL PROPIONATE [Concomitant]
     Indication: PRODUCT USED FOR UNKNOWN INDICATION
     Dosage: APPLIED TO PSORIASIS AREAS
  9. MIRTAZAPINE [Suspect]
     Indication: PRODUCT USED FOR UNKNOWN INDICATION
     Dosage: TAKEN AT BEDTIME
  10. LITHIUM [Suspect]
     Indication: BIPOLAR DISORDER
     Dates: start: 20070101, end: 20110801
  11. OMEPRAZOLE [Concomitant]
     Indication: GASTROOESOPHAGEAL REFLUX DISEASE
  12. NATURAL VEGETABLE LAXATIVE [Concomitant]
     Indication: PRODUCT USED FOR UNKNOWN INDICATION

REACTIONS (9)
  - WEIGHT INCREASED [None]
  - TOXICITY TO VARIOUS AGENTS [None]
  - ORAL PAIN [None]
  - HYPOTENSION [None]
  - DIARRHOEA [None]
  - MALAISE [None]
  - TOOTH DISORDER [None]
  - AGEUSIA [None]
  - GRIP STRENGTH DECREASED [None]
